FAERS Safety Report 18122860 (Version 1)
Quarter: 2020Q3

REPORT INFORMATION
  Report Type: Spontaneous
  Country: US (occurrence: US)
  Receive Date: 20200807
  Receipt Date: 20200807
  Transmission Date: 20201103
  Serious: Yes (Hospitalization)
  Sender: FDA-Public Use
  Company Number: US-ELI_LILLY_AND_COMPANY-US202007012567

PATIENT
  Age: 60 Year
  Sex: Female

DRUGS (5)
  1. GLIPIZIDE. [Concomitant]
     Active Substance: GLIPIZIDE
     Indication: TYPE 2 DIABETES MELLITUS
  2. BASAGLAR [Suspect]
     Active Substance: INSULIN GLARGINE
     Dosage: 10 U, UNKNOWN
     Route: 058
  3. BASAGLAR [Suspect]
     Active Substance: INSULIN GLARGINE
     Indication: TYPE 2 DIABETES MELLITUS
     Dosage: 10 U, UNKNOWN
     Route: 058
  4. BASAGLAR [Suspect]
     Active Substance: INSULIN GLARGINE
     Indication: TYPE 2 DIABETES MELLITUS
     Dosage: 10 U, UNKNOWN
     Route: 058
  5. BASAGLAR [Suspect]
     Active Substance: INSULIN GLARGINE
     Dosage: 10 U, UNKNOWN
     Route: 058

REACTIONS (6)
  - Asymptomatic COVID-19 [Recovering/Resolving]
  - Cataract [Not Recovered/Not Resolved]
  - Cardiac failure congestive [Not Recovered/Not Resolved]
  - Decreased activity [Unknown]
  - Pain in extremity [Not Recovered/Not Resolved]
  - Limb discomfort [Unknown]

NARRATIVE: CASE EVENT DATE: 202003
